FAERS Safety Report 6212759-1 (Version None)
Quarter: 2009Q2

REPORT INFORMATION
  Report Type: 
  Country: None (occurrence: None)
  Receive Date: 20090603
  Receipt Date: 20090526
  Transmission Date: 20091009
  Serious: Yes (Other)
  Sender: FDA-Public Use
  Company Number: US-BAYER-200920711NA

PATIENT
  Age: 54 Year
  Sex: Female
  Weight: 68 kg

DRUGS (11)
  1. SORAFENIB [Suspect]
     Indication: BREAST CANCER METASTATIC
     Dosage: TOTAL DAILY DOSE: 400 MG  UNIT DOSE: 200 MG
     Route: 048
     Dates: start: 20090317, end: 20090421
  2. SORAFENIB [Suspect]
     Dosage: TOTAL DAILY DOSE: 200 MG  UNIT DOSE: 200 MG
     Route: 048
     Dates: start: 20090422, end: 20090511
  3. SORAFENIB [Suspect]
     Dosage: TOTAL DAILY DOSE: 200 MG  UNIT DOSE: 200 MG
     Route: 048
     Dates: start: 20090518
  4. VINORELBINE [Suspect]
     Indication: BREAST CANCER METASTATIC
     Dosage: WEEKLY X3 WEEKS ON A 28 DAY CYCLE
     Route: 042
     Dates: start: 20090317, end: 20090428
  5. VINORELBINE [Suspect]
     Dosage: WEEKLY X3 WEEKS ON A 28 DAY CYCLE
     Route: 042
     Dates: start: 20090518
  6. COUMADIN [Concomitant]
     Indication: DEEP VEIN THROMBOSIS
     Dosage: 2 MG ALTERNATING 3 MG
     Route: 048
     Dates: start: 20090228, end: 20090401
  7. COUMADIN [Concomitant]
     Dosage: INCORRECT DOSE: 8MG ALTERNATING 12MG
     Route: 048
     Dates: start: 20090401, end: 20090511
  8. COUMADIN [Concomitant]
     Dosage: 5 MG FOR 2 DAYS FOLLOWED BY 2 MG ALTERNATING 3 MGS
     Route: 048
     Dates: start: 20090518
  9. LOSARTAN POTASSIUM [Concomitant]
     Indication: HYPERTENSION
     Dates: start: 20090422, end: 20090511
  10. ATENOLOL [Concomitant]
     Indication: HYPERTENSION
     Dates: start: 20080101
  11. CARTIA XT [Concomitant]
     Indication: HYPERTENSION
     Dates: start: 20080101

REACTIONS (6)
  - ACTIVATED PARTIAL THROMBOPLASTIN TIME PROLONGED [None]
  - BLOOD PRESSURE INCREASED [None]
  - CONTUSION [None]
  - OEDEMA PERIPHERAL [None]
  - PAIN IN EXTREMITY [None]
  - PROTHROMBIN TIME PROLONGED [None]
